FAERS Safety Report 6763320-1 (Version None)
Quarter: 2010Q2

REPORT INFORMATION
  Report Type: 
  Country: None (occurrence: None)
  Receive Date: 20100610
  Receipt Date: 20100527
  Transmission Date: 20101027
  Serious: Yes (Hospitalization)
  Sender: FDA-Public Use
  Company Number: CH-TYCO HEALTHCARE/MALLINCKRODT-T201001366

PATIENT

DRUGS (1)
  1. MORPHINE [Suspect]
     Indication: BACK PAIN
     Dosage: 7 MG QD
     Route: 037
     Dates: start: 20050801, end: 20070401

REACTIONS (2)
  - FOREIGN BODY REACTION [None]
  - MEDICAL DEVICE COMPLICATION [None]
